FAERS Safety Report 22631971 (Version 1)
Quarter: 2023Q2

REPORT INFORMATION
  Report Type: Spontaneous
  Country: CN (occurrence: CN)
  Receive Date: 20230623
  Receipt Date: 20230623
  Transmission Date: 20230722
  Serious: Yes (Other)
  Sender: FDA-Public Use
  Company Number: CN-002147023-NVSC2023CN138361

PATIENT
  Age: 24 Year
  Sex: Female
  Weight: 62 kg

DRUGS (1)
  1. DIOVAN [Suspect]
     Active Substance: VALSARTAN
     Indication: Protein urine present
     Dosage: 80 MG, QD
     Route: 048
     Dates: start: 20230515, end: 20230606

REACTIONS (2)
  - Acute kidney injury [Recovering/Resolving]
  - Product use in unapproved indication [Unknown]

NARRATIVE: CASE EVENT DATE: 20230605
